FAERS Safety Report 17080960 (Version 3)
Quarter: 2020Q3

REPORT INFORMATION
  Report Type: Spontaneous
  Country: US (occurrence: US)
  Receive Date: 20191127
  Receipt Date: 20200702
  Transmission Date: 20201102
  Serious: Yes (Life-Threatening, Other)
  Sender: FDA-Public Use
  Company Number: US-009507513-1911USA008032

PATIENT
  Age: 2 Month
  Sex: Male
  Weight: 7.3 kg

DRUGS (13)
  1. ROPIVACAINE. [Concomitant]
     Active Substance: ROPIVACAINE HYDROCHLORIDE
     Indication: ANAESTHESIA
     Dosage: 7 MILLILITER
     Dates: start: 201905, end: 201905
  2. CLONIDINE. [Concomitant]
     Active Substance: CLONIDINE
     Dosage: 1.37 UG/KG
  3. ROCURONIUM BROMIDE. [Concomitant]
     Active Substance: ROCURONIUM BROMIDE
     Indication: NEUROMUSCULAR BLOCKADE
     Dosage: 1.37 MG/KG, TOTAL DOSE AT THE END OF THE SURGERY WAS 2.74 MG/KG
     Dates: start: 20200509, end: 20200509
  4. FENTANYL. [Concomitant]
     Active Substance: FENTANYL
     Indication: INDUCTION OF ANAESTHESIA
     Dosage: 10 MILLIGRAM/KILOGRAM, ONCE
     Dates: start: 201905, end: 201905
  5. CLONIDINE. [Concomitant]
     Active Substance: CLONIDINE
     Indication: ANAESTHESIA
     Dosage: 10 MICROGRAM
     Dates: start: 201905, end: 201905
  6. AMPICILLIN [Concomitant]
     Active Substance: AMPICILLIN
     Indication: ANTIBIOTIC PROPHYLAXIS
  7. BRIDION [Suspect]
     Active Substance: SUGAMMADEX
     Indication: NEUROMUSCULAR BLOCKADE REVERSAL
     Dosage: 2.74 MG/KG
     Dates: start: 20190509, end: 20190509
  8. GENTAMICIN. [Concomitant]
     Active Substance: GENTAMICIN
     Indication: ANTIBIOTIC PROPHYLAXIS
  9. FENTANYL. [Concomitant]
     Active Substance: FENTANYL
     Dosage: 1.37 UG/KG, TOTAL DOSE AT THE END OF THE SURGERY WAS 3.42 UG/KG
  10. NITROUS OXIDE. [Concomitant]
     Active Substance: NITROUS OXIDE
     Indication: INDUCTION OF ANAESTHESIA
  11. SEVOFLURANE. [Concomitant]
     Active Substance: SEVOFLURANE
     Indication: INDUCTION OF ANAESTHESIA
  12. BRIDION [Suspect]
     Active Substance: SUGAMMADEX
     Dosage: 2.05 MG/KG
     Dates: start: 20190509, end: 20190509
  13. ROPIVACAINE. [Concomitant]
     Active Substance: ROPIVACAINE HYDROCHLORIDE
     Dosage: 1.92 MG/KG

REACTIONS (6)
  - Respiratory depression [Recovered/Resolved]
  - Respiratory arrest [Recovered/Resolved]
  - Recurrence of neuromuscular blockade [Recovered/Resolved]
  - Asthenia [Recovered/Resolved]
  - Off label use [Unknown]
  - Postoperative respiratory distress [Recovered/Resolved]

NARRATIVE: CASE EVENT DATE: 20190509
